FAERS Safety Report 5811041-1 (Version None)
Quarter: 2008Q3

REPORT INFORMATION
  Report Type: 
  Country: None (occurrence: None)
  Receive Date: 20080716
  Receipt Date: 20060927
  Transmission Date: 20090109
  Serious: Yes (Other)
  Sender: FDA-Public Use
  Company Number: JP-JNJFOC-20080703099

PATIENT

DRUGS (2)
  1. RISPERDAL [Suspect]
     Indication: DRUG USE FOR UNKNOWN INDICATION
     Route: 048
  2. LEVOMEPROMAZINE MALEATE [Concomitant]
     Route: 065

REACTIONS (6)
  - AGGRESSION [None]
  - CLUMSINESS [None]
  - DEPRESSED LEVEL OF CONSCIOUSNESS [None]
  - NEUROLOGICAL SYMPTOM [None]
  - SEXUAL ABUSE [None]
  - SUBARACHNOID HAEMORRHAGE [None]
